FAERS Safety Report 7682963-4 (Version None)
Quarter: 2011Q3

REPORT INFORMATION
  Report Type: 
  Country: None (occurrence: None)
  Receive Date: 20110812
  Receipt Date: 20110812
  Transmission Date: 20111222
  Serious: Yes (Other)
  Sender: FDA-Public Use
  Company Number: None

PATIENT
  Weight: 49.8957 kg

DRUGS (1)
  1. LISINOPRIL AND HYDROCHLOROTHIAZIDE [Suspect]
     Indication: BLOOD PRESSURE
     Dosage: 12.5 TAB 1 A DAY
     Dates: start: 20110716, end: 20110717

REACTIONS (9)
  - HYPOAESTHESIA [None]
  - SWELLING FACE [None]
  - GAIT DISTURBANCE [None]
  - PARAESTHESIA [None]
  - BLOOD PRESSURE FLUCTUATION [None]
  - RASH PRURITIC [None]
  - DIZZINESS [None]
  - SYNCOPE [None]
  - MUSCULAR WEAKNESS [None]
